FAERS Safety Report 21984679 (Version 4)
Quarter: 2023Q2

REPORT INFORMATION
  Report Type: Spontaneous
  Country: CN (occurrence: CN)
  Receive Date: 20230213
  Receipt Date: 20230418
  Transmission Date: 20230722
  Serious: Yes (Hospitalization)
  Sender: FDA-Public Use
  Company Number: CN-ELI_LILLY_AND_COMPANY-CN202301014053

PATIENT
  Age: 81 Year
  Sex: Female
  Weight: 55 kg

DRUGS (9)
  1. HUMULIN 70/30 [Suspect]
     Active Substance: INSULIN HUMAN
     Indication: Diabetes mellitus
     Dosage: 8 U, EACH MORNING
     Route: 058
  2. HUMULIN 70/30 [Suspect]
     Active Substance: INSULIN HUMAN
     Dosage: 4 U, EACH EVENING
     Route: 058
  3. HUMULIN 70/30 [Suspect]
     Active Substance: INSULIN HUMAN
     Dosage: 9 U, EACH MORNING
     Route: 058
  4. HUMULIN 70/30 [Suspect]
     Active Substance: INSULIN HUMAN
     Dosage: 5 U, EACH EVENING
     Route: 058
  5. HUMULIN 70/30 [Suspect]
     Active Substance: INSULIN HUMAN
     Dosage: 9 U, EACH MORNING
     Route: 058
  6. HUMULIN 70/30 [Suspect]
     Active Substance: INSULIN HUMAN
     Dosage: 5 U, EACH EVENING
     Route: 058
  7. HUMALOG [Suspect]
     Active Substance: INSULIN LISPRO
     Indication: Product used for unknown indication
     Dosage: 4 U, EACH MORNING
     Route: 065
  8. HUMALOG [Suspect]
     Active Substance: INSULIN LISPRO
     Dosage: 4 U, DAILY AT NOON
     Route: 065
  9. HUMALOG [Suspect]
     Active Substance: INSULIN LISPRO
     Dosage: 4 U, DAILY AT NIGHT
     Route: 065

REACTIONS (16)
  - Cerebral infarction [Unknown]
  - Lipids increased [Unknown]
  - Blood glucose increased [Unknown]
  - COVID-19 [Unknown]
  - Pulmonary calcification [Unknown]
  - Thyroid mass [Unknown]
  - Blood glucose increased [Recovered/Resolved]
  - Hyperglycaemia [Unknown]
  - Cataract [Unknown]
  - Pulmonary mass [Unknown]
  - Blood pressure increased [Unknown]
  - Discomfort [Unknown]
  - Hypoglycaemia [Unknown]
  - Suspected counterfeit product [Unknown]
  - Cardiac disorder [Unknown]
  - Coronary artery disease [Unknown]

NARRATIVE: CASE EVENT DATE: 20230129
